FAERS Safety Report 4910609-4 (Version None)
Quarter: 2006Q1

REPORT INFORMATION
  Report Type: 
  Country: None (occurrence: None)
  Receive Date: 20060214
  Receipt Date: 20060203
  Transmission Date: 20060701
  Serious: Yes (Hospitalization)
  Sender: FDA-Public Use
  Company Number: FR-ABBOTT-06P-056-0324194-00

PATIENT
  Age: 47 Year
  Sex: Male

DRUGS (8)
  1. DEPAKENE [Suspect]
     Indication: PROPHYLAXIS
     Route: 048
     Dates: start: 20050914, end: 20051028
  2. ESOMEPRAZOLE [Suspect]
     Indication: DRUG USE FOR UNKNOWN INDICATION
     Route: 048
     Dates: start: 20050912, end: 20051029
  3. PACLITAXEL [Concomitant]
     Indication: LUNG ADENOCARCINOMA
     Route: 042
     Dates: start: 20050914
  4. PACLITAXEL [Concomitant]
     Route: 042
     Dates: start: 20051005
  5. PACLITAXEL [Concomitant]
     Route: 042
     Dates: start: 20051027
  6. CARBOPLATIN [Concomitant]
     Indication: LUNG ADENOCARCINOMA
     Route: 042
     Dates: start: 20050914
  7. CARBOPLATIN [Concomitant]
     Route: 042
     Dates: start: 20051005
  8. CARBOPLATIN [Concomitant]
     Route: 011
     Dates: start: 20051027

REACTIONS (1)
  - CYTOLYTIC HEPATITIS [None]
